FAERS Safety Report 15419645 (Version 3)
Quarter: 2019Q2

REPORT INFORMATION
  Report Type: Spontaneous
  Country: US (occurrence: US)
  Receive Date: 20180924
  Receipt Date: 20190416
  Transmission Date: 20190711
  Serious: No
  Sender: FDA-Public Use
  Company Number: US-PFIZER INC-2018380653

PATIENT

DRUGS (1)
  1. QUILLICHEW ER [Suspect]
     Active Substance: METHYLPHENIDATE HYDROCHLORIDE
     Dosage: UNK
     Route: 048
     Dates: start: 201808, end: 20180815

REACTIONS (3)
  - Off label use [None]
  - Wrong technique in product usage process [None]
  - Drug ineffective [Unknown]

NARRATIVE: CASE EVENT DATE: 201808
